FAERS Safety Report 15931229 (Version 2)
Quarter: 2019Q4

REPORT INFORMATION
  Report Type: Spontaneous
  Country: US (occurrence: US)
  Receive Date: 20190207
  Receipt Date: 20191203
  Transmission Date: 20200122
  Serious: Yes (Other)
  Sender: FDA-Public Use
  Company Number: US-ASTRAZENECA-2019SE18580

PATIENT
  Age: 21872 Day
  Sex: Female
  Weight: 85.7 kg

DRUGS (76)
  1. NEXIUM [Suspect]
     Active Substance: ESOMEPRAZOLE MAGNESIUM
     Indication: GASTROOESOPHAGEAL REFLUX DISEASE
     Route: 048
     Dates: start: 20070209, end: 20181225
  2. ALLEGRA-D [Concomitant]
     Active Substance: FEXOFENADINE\PSEUDOEPHEDRINE
     Dates: start: 20101022
  3. AMOX-CLAV [Concomitant]
     Active Substance: AMOXICILLIN\CLAVULANATE POTASSIUM
     Dates: start: 20100528
  4. AVELOX [Concomitant]
     Active Substance: MOXIFLOXACIN HYDROCHLORIDE
  5. PROMETHAZINE-CODEINE [Concomitant]
     Active Substance: CODEINE PHOSPHATE\PROMETHAZINE
  6. FOLIC ACID. [Concomitant]
     Active Substance: FOLIC ACID
  7. METHOTREXATE. [Concomitant]
     Active Substance: METHOTREXATE
  8. CRANBERRY. [Concomitant]
     Active Substance: CRANBERRY
  9. NYSTATIN. [Concomitant]
     Active Substance: NYSTATIN
  10. NEXIUM [Suspect]
     Active Substance: ESOMEPRAZOLE MAGNESIUM
     Indication: GASTROOESOPHAGEAL REFLUX DISEASE
     Route: 048
     Dates: start: 20070209, end: 20161216
  11. GLIPIZIDE. [Concomitant]
     Active Substance: GLIPIZIDE
     Dates: start: 20180119
  12. LIVALO [Concomitant]
     Active Substance: PITAVASTATIN CALCIUM
  13. DILTIAZEM. [Concomitant]
     Active Substance: DILTIAZEM
  14. XIFAXAN [Concomitant]
     Active Substance: RIFAXIMIN
  15. NEXIUM [Suspect]
     Active Substance: ESOMEPRAZOLE MAGNESIUM
     Indication: GASTROOESOPHAGEAL REFLUX DISEASE
     Dosage: 40 MG
     Route: 048
     Dates: start: 20180718
  16. XENICAL [Concomitant]
     Active Substance: ORLISTAT
     Dates: start: 20100901
  17. CREON [Concomitant]
     Active Substance: PANCRELIPASE AMYLASE\PANCRELIPASE LIPASE\PANCRELIPASE PROTEASE
     Dates: start: 20180110
  18. CELEBREX [Concomitant]
     Active Substance: CELECOXIB
     Dates: start: 20110516
  19. NASONEX [Concomitant]
     Active Substance: MOMETASONE FUROATE
  20. COMBIVENT [Concomitant]
     Active Substance: ALBUTEROL SULFATE\IPRATROPIUM BROMIDE
  21. CEFDINIR. [Concomitant]
     Active Substance: CEFDINIR
  22. DUREZOL [Concomitant]
     Active Substance: DIFLUPREDNATE
  23. HYDRALAZINE [Concomitant]
     Active Substance: HYDRALAZINE HYDROCHLORIDE
  24. ALDACTONE [Concomitant]
     Active Substance: SPIRONOLACTONE
  25. VITAMIN D2 [Concomitant]
     Active Substance: ERGOCALCIFEROL
     Dates: start: 20100408
  26. CEPHALEXIN. [Concomitant]
     Active Substance: CEPHALEXIN
     Dates: start: 20110516
  27. CLARITHROMYCIN. [Concomitant]
     Active Substance: CLARITHROMYCIN
     Dates: start: 20110609
  28. OXYCODONE-ACETAMINOPHEN [Concomitant]
     Active Substance: ACETAMINOPHEN\OXYCODONE HYDROCHLORIDE
  29. LEVOCETIRIZINE [Concomitant]
     Active Substance: LEVOCETIRIZINE
  30. AMITIZA [Concomitant]
     Active Substance: LUBIPROSTONE
  31. FLUTICASONE. [Concomitant]
     Active Substance: FLUTICASONE
  32. METRONIDAZOLE. [Concomitant]
     Active Substance: METRONIDAZOLE
  33. LYRICA [Concomitant]
     Active Substance: PREGABALIN
  34. DICYCLOMINE [Concomitant]
     Active Substance: DICYCLOMINE HYDROCHLORIDE
  35. MODAFINIL. [Concomitant]
     Active Substance: MODAFINIL
  36. COZAAR [Concomitant]
     Active Substance: LOSARTAN POTASSIUM
  37. ALLOPURINOL. [Concomitant]
     Active Substance: ALLOPURINOL
  38. ACIDOPHILUS [Concomitant]
     Active Substance: LACTOBACILLUS ACIDOPHILUS
  39. NEXIUM [Suspect]
     Active Substance: ESOMEPRAZOLE MAGNESIUM
     Indication: GASTROOESOPHAGEAL REFLUX DISEASE
     Dosage: GENERIC
     Route: 048
     Dates: start: 20161110, end: 20181225
  40. OMNARIS [Concomitant]
     Active Substance: CICLESONIDE
     Dates: start: 20110416
  41. FOLGARD [Concomitant]
     Dates: start: 20100505
  42. ALBUTEROL. [Concomitant]
     Active Substance: ALBUTEROL
  43. MELOXICAM. [Concomitant]
     Active Substance: MELOXICAM
  44. WELCHOL [Concomitant]
     Active Substance: COLESEVELAM HYDROCHLORIDE
  45. SPIRIVA [Concomitant]
     Active Substance: TIOTROPIUM BROMIDE MONOHYDRATE
  46. INDOMETHACIN. [Concomitant]
     Active Substance: INDOMETHACIN
  47. NASACORT [Concomitant]
     Active Substance: TRIAMCINOLONE ACETONIDE
  48. PREDNISONE. [Concomitant]
     Active Substance: PREDNISONE
     Dates: start: 20100420
  49. TRICOR [Concomitant]
     Active Substance: FENOFIBRATE
     Dates: start: 20100331
  50. KETOCONAZOLE. [Concomitant]
     Active Substance: KETOCONAZOLE
     Dates: start: 20171220
  51. NABUMETONE. [Concomitant]
     Active Substance: NABUMETONE
  52. CHLORHEXIDINE [Concomitant]
     Active Substance: CHLORHEXIDINE
  53. HYDROCORTISONE-PRAMOXINE [Concomitant]
  54. DEXAMETHASONE. [Concomitant]
     Active Substance: DEXAMETHASONE
  55. LEVOFLOXACIN. [Concomitant]
     Active Substance: LEVOFLOXACIN
  56. CLOTRIMAZOLE. [Concomitant]
     Active Substance: CLOTRIMAZOLE
  57. PRAVASTATIN SODIUM. [Concomitant]
     Active Substance: PRAVASTATIN SODIUM
  58. FEXOFENADINE [Concomitant]
     Active Substance: FEXOFENADINE HYDROCHLORIDE
  59. LASIX [Concomitant]
     Active Substance: FUROSEMIDE
  60. DEXILANT [Suspect]
     Active Substance: DEXLANSOPRAZOLE
     Indication: GASTROOESOPHAGEAL REFLUX DISEASE
     Route: 065
     Dates: start: 20150727, end: 20151119
  61. ASTEPRO [Concomitant]
     Active Substance: AZELASTINE HYDROCHLORIDE
     Dates: start: 20100630
  62. FLUOCINONIDE. [Concomitant]
     Active Substance: FLUOCINONIDE
     Dates: start: 20110502
  63. BEPREVE [Concomitant]
     Active Substance: BEPOTASTINE BESILATE
  64. CLOBETASOL [Concomitant]
     Active Substance: CLOBETASOL
  65. NITROFURANTOIN. [Concomitant]
     Active Substance: NITROFURANTOIN
  66. LEVALBUTEROL. [Concomitant]
     Active Substance: LEVALBUTEROL
  67. NEXIUM [Suspect]
     Active Substance: ESOMEPRAZOLE MAGNESIUM
     Indication: GASTROOESOPHAGEAL REFLUX DISEASE
     Dosage: GENERIC
     Route: 048
     Dates: start: 20170504
  68. PEPCID [Concomitant]
     Active Substance: FAMOTIDINE
     Dates: start: 200612, end: 200702
  69. HYDROCHLOROTHIAZIDE. [Concomitant]
     Active Substance: HYDROCHLOROTHIAZIDE
     Dates: start: 20110312
  70. BETAMETHASONE. [Concomitant]
     Active Substance: BETAMETHASONE
     Dates: start: 20100528
  71. OSELTAMIVIR [Concomitant]
     Active Substance: OSELTAMIVIR
     Dates: start: 20180215
  72. SINGULAIR [Concomitant]
     Active Substance: MONTELUKAST SODIUM
     Dates: start: 20110902
  73. CYCLOBENZAPRINE. [Concomitant]
     Active Substance: CYCLOBENZAPRINE
  74. SYNTHROID [Concomitant]
     Active Substance: LEVOTHYROXINE SODIUM
  75. RAMIPRIL. [Concomitant]
     Active Substance: RAMIPRIL
  76. GENTAMICIN SULFATE. [Concomitant]
     Active Substance: GENTAMICIN SULFATE

REACTIONS (2)
  - Acute kidney injury [Unknown]
  - Chronic kidney disease [Not Recovered/Not Resolved]

NARRATIVE: CASE EVENT DATE: 20150223
